FAERS Safety Report 16745052 (Version 3)
Quarter: 2019Q3

REPORT INFORMATION
  Report Type: Spontaneous
  Country: IT (occurrence: IT)
  Receive Date: 20190827
  Receipt Date: 20190903
  Transmission Date: 20191005
  Serious: Yes (Other)
  Sender: FDA-Public Use
  Company Number: IT-PFIZER INC-2019362782

PATIENT
  Age: 9 Year
  Sex: Male

DRUGS (5)
  1. METHYLPREDNISOLONE SODIUM SUCCINATE. [Suspect]
     Active Substance: METHYLPREDNISOLONE SODIUM SUCCINATE
     Indication: CENTRAL NERVOUS SYSTEM VASCULITIS
     Dosage: UNK (HIGH DOSE)
     Route: 042
  2. PREDNISONE. [Suspect]
     Active Substance: PREDNISONE
     Indication: CENTRAL NERVOUS SYSTEM VASCULITIS
     Dosage: UNK
     Route: 048
  3. PREDNISOLONE. [Suspect]
     Active Substance: PREDNISOLONE
     Indication: CENTRAL NERVOUS SYSTEM VASCULITIS
     Dosage: 0.5 MG/KG, 1X/DAY
  4. ASPIRINE [Concomitant]
     Active Substance: ASPIRIN
     Dosage: UNK, (LOW DOSE)
  5. PREDNISONE. [Suspect]
     Active Substance: PREDNISONE
     Dosage: SLOW TAPERING
     Route: 048

REACTIONS (3)
  - Henoch-Schonlein purpura [Recovered/Resolved]
  - Scrotal swelling [Recovered/Resolved]
  - Scrotal pain [Recovered/Resolved]
